FAERS Safety Report 13752413 (Version 2)
Quarter: 2017Q3

REPORT INFORMATION
  Report Type: Report from Study
  Country: US (occurrence: US)
  Receive Date: 20170713
  Receipt Date: 20170823
  Transmission Date: 20171127
  Serious: Yes (Hospitalization)
  Sender: FDA-Public Use
  Company Number: US-AMGEN-USACT2017104748

PATIENT
  Age: 74 Year
  Sex: Female
  Weight: 60 kg

DRUGS (17)
  1. DIAZEPAM. [Concomitant]
     Active Substance: DIAZEPAM
     Dosage: 1 UNK, UNK
     Dates: start: 2008, end: 20170523
  2. TRAMADOL. [Concomitant]
     Active Substance: TRAMADOL
     Dosage: 1 UNK, UNK
     Dates: start: 2008, end: 20170523
  3. ETANERCEPT [Suspect]
     Active Substance: ETANERCEPT
     Indication: RHEUMATOID ARTHRITIS
     Dosage: 50 MG, UNK
     Route: 058
     Dates: start: 20170606, end: 20170606
  4. WELLBUTRIN [Concomitant]
     Active Substance: BUPROPION HYDROCHLORIDE
     Dosage: 150 MG, UNK
     Dates: start: 2013, end: 20170522
  5. METOPROLOL. [Concomitant]
     Active Substance: METOPROLOL
     Dosage: 1 UNK, UNK
     Dates: start: 2008, end: 20170523
  6. DILAUDID [Concomitant]
     Active Substance: HYDROMORPHONE HYDROCHLORIDE
     Dosage: 4 MG, UNK
     Dates: start: 2012, end: 20170523
  7. PANTOPRAZOLE [Concomitant]
     Active Substance: PANTOPRAZOLE
     Dosage: 40 MG, UNK
     Dates: start: 2012, end: 20170522
  8. MELATONIN [Concomitant]
     Active Substance: MELATONIN
     Dosage: 2 UNK, UNK
     Dates: start: 2010, end: 20170523
  9. GABAPENTIN. [Concomitant]
     Active Substance: GABAPENTIN
     Dosage: 2 UNK, UNK
     Dates: start: 2014, end: 20170523
  10. BACLOFEN. [Concomitant]
     Active Substance: BACLOFEN
     Dosage: 1 UNK, UNK
     Dates: start: 2008, end: 20170523
  11. NORCO [Concomitant]
     Active Substance: ACETAMINOPHEN\HYDROCODONE BITARTRATE
     Dosage: 1 UNK, UNK
     Dates: start: 2008, end: 20170523
  12. SPIRIVA [Concomitant]
     Active Substance: TIOTROPIUM BROMIDE MONOHYDRATE
     Dosage: 2 UNK, UNK
     Dates: start: 2002, end: 20170523
  13. TOPIRAMATE. [Concomitant]
     Active Substance: TOPIRAMATE
     Dosage: 1 UNK, UNK
     Dates: start: 2008, end: 20170523
  14. HYDROXYCHLOROQUINE [Concomitant]
     Active Substance: HYDROXYCHLOROQUINE
     Dosage: 1 UNK, UNK
     Dates: start: 2008, end: 20170523
  15. CYMBALTA [Concomitant]
     Active Substance: DULOXETINE HYDROCHLORIDE
     Dosage: 1 UNK, UNK
     Dates: start: 2008, end: 20170523
  16. SURECLICK AUTOINJECTOR [Suspect]
     Active Substance: DEVICE
     Indication: RHEUMATOID ARTHRITIS
     Dosage: UNK
     Route: 058
     Dates: start: 20170606, end: 20170606
  17. VITAMIN E [Concomitant]
     Active Substance: .ALPHA.-TOCOPHEROL
     Dosage: 1 UNK, UNK
     Dates: start: 2008, end: 20170523

REACTIONS (1)
  - Bronchitis viral [Recovered/Resolved]

NARRATIVE: CASE EVENT DATE: 20170610
